FAERS Safety Report 4633190-6 (Version None)
Quarter: 2005Q2

REPORT INFORMATION
  Report Type: 
  Country: None (occurrence: None)
  Receive Date: 20050411
  Receipt Date: 20050411
  Transmission Date: 20051028
  Serious: No
  Sender: FDA-Public Use
  Company Number: None

PATIENT
  Sex: Male
  Weight: 79.5 kg

DRUGS (3)
  1. CAPECITABINE [Suspect]
     Indication: RECTAL CANCER
     Dosage: 600 MG/M2 DAILY
     Dates: start: 20041108
  2. XRT [Concomitant]
  3. IRINOTECAN HCL [Suspect]
     Dosage: 50 MG/M2 IV DAYS 1,8,15,22, FOLLOWED BY SURGERY
     Route: 042

REACTIONS (8)
  - ASTHENIA [None]
  - BODY TEMPERATURE INCREASED [None]
  - CHILLS [None]
  - DEHYDRATION [None]
  - DIARRHOEA [None]
  - FEELING COLD [None]
  - ORAL INTAKE REDUCED [None]
  - REFUSAL OF TREATMENT BY PATIENT [None]
